FAERS Safety Report 13877582 (Version 5)
Quarter: 2018Q1

REPORT INFORMATION
  Report Type: Spontaneous
  Country: US (occurrence: US)
  Receive Date: 20170817
  Receipt Date: 20180202
  Transmission Date: 20180508
  Serious: Yes (Other)
  Sender: FDA-Public Use
  Company Number: US-INCYTE CORPORATION-2017IN006743

PATIENT

DRUGS (1)
  1. JAKAFI [Suspect]
     Active Substance: RUXOLITINIB
     Indication: MYELOFIBROSIS
     Dosage: 5 MG, BID
     Route: 048
     Dates: start: 20170717

REACTIONS (5)
  - White blood cell disorder [Unknown]
  - Increased tendency to bruise [Unknown]
  - Platelet count decreased [Unknown]
  - Malaise [Not Recovered/Not Resolved]
  - Red blood cell abnormality [Recovering/Resolving]

NARRATIVE: CASE EVENT DATE: 20170724
